FAERS Safety Report 6233933-4 (Version None)
Quarter: 2009Q2

REPORT INFORMATION
  Report Type: 
  Country: None (occurrence: None)
  Receive Date: 20090618
  Receipt Date: 20090609
  Transmission Date: 20091009
  Serious: Yes (Other)
  Sender: FDA-Public Use
  Company Number: GB-JNJFOC-20090603345

PATIENT
  Sex: Male

DRUGS (2)
  1. REMICADE [Suspect]
     Indication: COLITIS ULCERATIVE
     Dosage: FIRST INFUSION
     Route: 042
  2. HYDROCORTISONE [Concomitant]
     Indication: PREMEDICATION
     Route: 042

REACTIONS (9)
  - ANAPHYLACTOID REACTION [None]
  - CONFUSIONAL STATE [None]
  - DEPRESSION [None]
  - HYPERHIDROSIS [None]
  - HYPERSOMNIA [None]
  - PYREXIA [None]
  - SOMNOLENCE [None]
  - TREMOR [None]
  - TYPE IV HYPERSENSITIVITY REACTION [None]
